FAERS Safety Report 13458358 (Version 2)
Quarter: 2017Q2

REPORT INFORMATION
  Report Type: Spontaneous
  Country: US (occurrence: US)
  Receive Date: 20170419
  Receipt Date: 20170419
  Transmission Date: 20170830
  Serious: Yes (Other)
  Sender: FDA-Public Use
  Company Number: US-009507513-1704USA006461

PATIENT
  Age: 63 Year
  Sex: Male

DRUGS (1)
  1. PROVENTIL [Suspect]
     Active Substance: ALBUTEROL
     Indication: PROPHYLAXIS AGAINST BRONCHOSPASM
     Dosage: 2 PUFFS/ EVERY 4-6 HOURS
     Route: 055
     Dates: start: 20170403, end: 20170404

REACTIONS (3)
  - Cough [Recovered/Resolved]
  - Product quality issue [Unknown]
  - Asphyxia [Recovered/Resolved]

NARRATIVE: CASE EVENT DATE: 20170403
